FAERS Safety Report 4751173-2 (Version None)
Quarter: 2005Q3

REPORT INFORMATION
  Report Type: 
  Country: None (occurrence: None)
  Receive Date: 20050822
  Receipt Date: 20050822
  Transmission Date: 20060218
  Serious: No
  Sender: FDA-Public Use
  Company Number: None

PATIENT
  Age: 59 Year
  Sex: Male
  Weight: 81.6475 kg

DRUGS (2)
  1. NEURONTIN [Suspect]
     Dosage: 300 MG  TID
  2. DILANTIN [Suspect]
     Dosage: 100 MG  QID

REACTIONS (1)
  - NO ADVERSE DRUG EFFECT [None]
